FAERS Safety Report 8529030-5 (Version None)
Quarter: 2012Q3

REPORT INFORMATION
  Report Type: 
  Country: None (occurrence: None)
  Receive Date: 20120716
  Receipt Date: 20120716
  Transmission Date: 20120928
  Serious: Yes (Hospitalization)
  Sender: FDA-Public Use
  Company Number: None

PATIENT
  Sex: Male
  Weight: 141 kg

DRUGS (4)
  1. DACARBAZINE [Suspect]
     Dosage: 2080 MG
  2. VINCRISTINE SULFATE [Suspect]
     Dosage: 34 MG
  3. DOXORUBICIN HYDROCHLORIDE [Suspect]
     Dosage: 138 MG
  4. BLEOMYCIN SULFATE [Suspect]
     Dosage: 56 MG

REACTIONS (7)
  - ENTEROCOCCAL INFECTION [None]
  - SEPSIS [None]
  - LEUKOCYTOSIS [None]
  - DEHYDRATION [None]
  - ANAEMIA [None]
  - PSEUDOMONAS INFECTION [None]
  - SINUS TACHYCARDIA [None]
